FAERS Safety Report 10007957 (Version 2)
Quarter: 2014Q2

REPORT INFORMATION
  Report Type: Report from Study
  Country: IE (occurrence: IE)
  Receive Date: 20140313
  Receipt Date: 20140506
  Transmission Date: 20141212
  Serious: Yes (Other)
  Sender: FDA-Public Use
  Company Number: IE-BRISTOL-MYERS SQUIBB COMPANY-20383584

PATIENT
  Age: 61 Year
  Sex: Female

DRUGS (6)
  1. ORENCIA FOR INJ [Suspect]
     Indication: RHEUMATOID ARTHRITIS
     Dosage: FREQUENCY: 1/12
     Route: 042
     Dates: start: 20110808
  2. CELEBREX [Concomitant]
  3. SALAZOPYRIN [Concomitant]
  4. FOLIC ACID [Concomitant]
  5. PLAQUENIL [Concomitant]
  6. METHOTREXATE [Concomitant]

REACTIONS (1)
  - Basal cell carcinoma [Unknown]
